FAERS Safety Report 25190541 (Version 3)
Quarter: 2025Q3

REPORT INFORMATION
  Report Type: Report from Study
  Country: US (occurrence: US)
  Receive Date: 20250411
  Receipt Date: 20250725
  Transmission Date: 20251020
  Serious: Yes (Other)
  Sender: SUNOVION
  Company Number: US-SMPA-2025SPA003816

PATIENT

DRUGS (2)
  1. ORGOVYX [Suspect]
     Active Substance: RELUGOLIX
     Indication: Prostate cancer
     Route: 048
     Dates: start: 20250201, end: 20250201
  2. ORGOVYX [Suspect]
     Active Substance: RELUGOLIX
     Dosage: 120 MG, QD
     Route: 048
     Dates: start: 20250202

REACTIONS (8)
  - Neoplasm malignant [Unknown]
  - Andropause [Unknown]
  - Limb discomfort [Unknown]
  - Urinary tract disorder [Unknown]
  - Malaise [Unknown]
  - Dysuria [Unknown]
  - Weight increased [Unknown]
  - Asthenia [Unknown]
